FAERS Safety Report 9372414 (Version 1)
Quarter: 2013Q2

REPORT INFORMATION
  Report Type: Spontaneous
  Country: FR (occurrence: None)
  Receive Date: 20130625
  Receipt Date: 20130625
  Transmission Date: 20140414
  Serious: Yes (Hospitalization)
  Sender: FDA-Public Use
  Company Number: FR-20130262

PATIENT
  Age: 75 Year
  Sex: Female

DRUGS (2)
  1. DOTAREM [Suspect]
     Indication: NUCLEAR MAGNETIC RESONANCE IMAGING
     Dates: start: 20130411, end: 20130411
  2. BACTRIM [Suspect]
     Indication: CYSTITIS BACTERIAL
     Route: 048
     Dates: start: 20130408, end: 20130416

REACTIONS (3)
  - Stevens-Johnson syndrome [None]
  - Conjunctivitis [None]
  - Lichenoid keratosis [None]
